FAERS Safety Report 10686499 (Version 1)
Quarter: 2015Q1

REPORT INFORMATION
  Report Type: Report from Study
  Country: US (occurrence: US)
  Receive Date: 20150101
  Receipt Date: 20150101
  Transmission Date: 20150720
  Serious: Yes (Other)
  Sender: FDA-Public Use
  Company Number: US-ROCHE-1515527

PATIENT

DRUGS (2)
  1. BEVACIZUMAB [Suspect]
     Active Substance: BEVACIZUMAB
     Indication: NEOPLASM MALIGNANT
     Dosage: BEVACIZUMAB WAS INFUSED INTRAVENOUSLY ON DAY 1 OF EACH 21-DAY CYCLE WITH A DOSE ESCALATION RANGE OF
     Route: 042
  2. BORTEZOMIB [Suspect]
     Active Substance: BORTEZOMIB
     Indication: NEOPLASM MALIGNANT
     Dosage: BORTEZOMIB WAS INFUSED INTRAVENOUSLY ON DAYS 1, 4, 8, AND 11 OF EACH 21- DAY CYCLE WITH A DOSE ESCAL
     Route: 042

REACTIONS (14)
  - Proteinuria [Unknown]
  - Thrombocytopenia [Unknown]
  - Fatigue [Unknown]
  - Hypertension [Unknown]
  - Gastrointestinal haemorrhage [Unknown]
  - Nausea [Unknown]
  - Neutropenia [Unknown]
  - Acute kidney injury [Unknown]
  - Diarrhoea [Unknown]
  - Vomiting [Unknown]
  - Pulmonary embolism [Unknown]
  - Haemoptysis [Unknown]
  - Neuropathy peripheral [Unknown]
  - Anaemia [Unknown]
